FAERS Safety Report 10062242 (Version 1)
Quarter: 2014Q2

REPORT INFORMATION
  Report Type: Spontaneous
  Country: FR (occurrence: FR)
  Receive Date: 20140407
  Receipt Date: 20140407
  Transmission Date: 20141212
  Serious: Yes (Hospitalization)
  Sender: FDA-Public Use
  Company Number: FR-ASTRAZENECA-2014SE22985

PATIENT
  Age: 70 Year
  Sex: Female

DRUGS (14)
  1. XEROQUEL [Suspect]
     Route: 048
     Dates: start: 20131026, end: 20131104
  2. CRESTOR [Concomitant]
  3. INEXIUM [Concomitant]
  4. CO-APROVEL [Concomitant]
  5. KARDEGIC [Concomitant]
  6. LASILIX [Concomitant]
  7. HYPERIUM [Concomitant]
  8. EUPRESSYL [Concomitant]
  9. IKOREL [Concomitant]
  10. NOVOMIX [Concomitant]
  11. STAGID [Concomitant]
  12. PLAVIX [Concomitant]
  13. BISOPROLOL [Concomitant]
  14. DEPAMIDE [Concomitant]

REACTIONS (2)
  - Chest pain [Recovered/Resolved with Sequelae]
  - Acute coronary syndrome [Recovered/Resolved]
